FAERS Safety Report 6239245-7 (Version None)
Quarter: 2009Q2

REPORT INFORMATION
  Report Type: 
  Country: None (occurrence: None)
  Receive Date: 20090622
  Receipt Date: 20090622
  Transmission Date: 20091009
  Serious: Yes (Other)
  Sender: FDA-Public Use
  Company Number: US-PFIZER INC-2009193003

PATIENT
  Sex: Female
  Weight: 72.562 kg

DRUGS (5)
  1. ZOLOFT [Suspect]
     Indication: GENERALISED ANXIETY DISORDER
     Dosage: UNK
     Dates: start: 20071005, end: 20080201
  2. CLONAZEPAM [Suspect]
     Dosage: 0.5 MG, 2X/DAY
  3. BUPROPION [Suspect]
     Indication: DEPRESSION
     Dates: start: 20080201, end: 20080101
  4. DESOGEN ^CIBA-GEIGY^ [Concomitant]
  5. ALL OTHER THERAPEUTIC PRODUCTS [Concomitant]

REACTIONS (14)
  - AFFECT LABILITY [None]
  - ANORGASMIA [None]
  - ANXIETY [None]
  - DEPRESSION [None]
  - DYSPHORIA [None]
  - IRRITABILITY [None]
  - JUDGEMENT IMPAIRED [None]
  - LIBIDO INCREASED [None]
  - MOOD SWINGS [None]
  - SEXUAL ABUSE [None]
  - SEXUAL DYSFUNCTION [None]
  - SUICIDAL IDEATION [None]
  - WEIGHT INCREASED [None]
  - WITHDRAWAL SYNDROME [None]
